FAERS Safety Report 11244162 (Version 2)
Quarter: 2015Q3

REPORT INFORMATION
  Report Type: Report from Study
  Country: DE (occurrence: DE)
  Receive Date: 20150707
  Receipt Date: 20150731
  Transmission Date: 20151125
  Serious: Yes (Death, Other)
  Sender: FDA-Public Use
  Company Number: DE-ROCHE-1597940

PATIENT

DRUGS (4)
  1. ALTEPLASE [Suspect]
     Active Substance: ALTEPLASE
     Route: 042
  2. HEPARIN [Suspect]
     Active Substance: HEPARIN SODIUM
     Indication: PULMONARY EMBOLISM
     Route: 040
  3. HEPARIN [Suspect]
     Active Substance: HEPARIN SODIUM
     Dosage: 1250 IU/H TO MAINTAIN ACTIVATED PARTIAL THROMBOPLASTIN TIME (APTT) AT 60-80 SECONDS
     Route: 042
  4. ALTEPLASE [Suspect]
     Active Substance: ALTEPLASE
     Indication: PULMONARY EMBOLISM
     Route: 065

REACTIONS (5)
  - Haemorrhagic stroke [Unknown]
  - Sepsis [Unknown]
  - Death [Fatal]
  - Haemorrhage [Unknown]
  - Pulmonary embolism [Unknown]
